FAERS Safety Report 7723317-1 (Version None)
Quarter: 2011Q3

REPORT INFORMATION
  Report Type: 
  Country: None (occurrence: None)
  Receive Date: 20110901
  Receipt Date: 20110901
  Transmission Date: 20111222
  Serious: No
  Sender: FDA-Public Use
  Company Number: None

PATIENT
  Age: 29 Year
  Sex: Male
  Weight: 102.05 kg

DRUGS (1)
  1. POTASSIUM GLUCONATE TAB [Suspect]
     Indication: NEUROMYOPATHY
     Dosage: 1 PILL
     Route: 048
     Dates: start: 20110830, end: 20110831

REACTIONS (1)
  - VOMITING [None]
